FAERS Safety Report 11740964 (Version 1)
Quarter: 2015Q4

REPORT INFORMATION
  Report Type: Report from Study
  Country: VE (occurrence: VE)
  Receive Date: 20151115
  Receipt Date: 20151115
  Transmission Date: 20160304
  Serious: No
  Sender: FDA-Public Use
  Company Number: PHHY2015VE148141

PATIENT
  Sex: Female

DRUGS (5)
  1. INTAFERFOL [Concomitant]
     Indication: BLOOD IRON ABNORMAL
     Dosage: 100/350 MG, UNK
     Route: 065
  2. GLYTOP//GLIPIZIDE [Concomitant]
     Indication: GASTRITIS PROPHYLAXIS
     Dosage: 40 MG, UNK
     Route: 065
  3. KATIVIL [Concomitant]
     Indication: MUSCLE DISORDER
     Dosage: 10 MG, UNK
     Route: 065
  4. TASIGNA [Suspect]
     Active Substance: NILOTINIB
     Indication: CHRONIC MYELOID LEUKAEMIA
     Dosage: 800 MG, QD
     Route: 048
     Dates: start: 20140101
  5. LOSARTAN. [Concomitant]
     Active Substance: LOSARTAN
     Indication: BLOOD PRESSURE ABNORMAL
     Dosage: 50 MG, UNK
     Route: 065

REACTIONS (5)
  - Syncope [Recovering/Resolving]
  - Vomiting [Recovering/Resolving]
  - Blood iron decreased [Recovering/Resolving]
  - Pyrexia [Recovering/Resolving]
  - Haemoglobin decreased [Recovering/Resolving]
